FAERS Safety Report 7422208-3 (Version None)
Quarter: 2011Q2

REPORT INFORMATION
  Report Type: 
  Country: None (occurrence: None)
  Receive Date: 20110418
  Receipt Date: 20110412
  Transmission Date: 20111010
  Serious: Yes (Other)
  Sender: FDA-Public Use
  Company Number: FR-BRISTOL-MYERS SQUIBB COMPANY-15618820

PATIENT
  Age: 62 Year
  Sex: Male
  Weight: 110 kg

DRUGS (3)
  1. GLUCOPHAGE [Concomitant]
  2. METFORMIN [Concomitant]
     Indication: DIABETES MELLITUS
  3. ONGLYZA [Suspect]
     Route: 048
     Dates: start: 20101008, end: 20110221

REACTIONS (1)
  - EXTRASYSTOLES [None]
